FAERS Safety Report 6137595-6 (Version None)
Quarter: 2009Q1

REPORT INFORMATION
  Report Type: 
  Country: None (occurrence: None)
  Receive Date: 20090327
  Receipt Date: 20090327
  Transmission Date: 20090719
  Serious: Yes (Hospitalization)
  Sender: FDA-Public Use
  Company Number: None

PATIENT
  Sex: Male

DRUGS (3)
  1. DASATINIB [Suspect]
     Indication: PROSTATE CANCER
     Dosage: 70 MG. BID PO
     Route: 048
     Dates: start: 20090218, end: 20090310
  2. DASATINIB [Suspect]
     Indication: PROSTATE CANCER
     Dosage: 70 MG. BID PO
     Route: 048
     Dates: start: 20090318, end: 20090320
  3. GLIMEPIRIDE [Concomitant]

REACTIONS (2)
  - PNEUMONIA [None]
  - URINARY TRACT INFECTION [None]
